FAERS Safety Report 6161274-2 (Version None)
Quarter: 2009Q2

REPORT INFORMATION
  Report Type: 
  Country: None (occurrence: None)
  Receive Date: 20090417
  Receipt Date: 20090409
  Transmission Date: 20091009
  Serious: Yes (Hospitalization)
  Sender: FDA-Public Use
  Company Number: 2009AL001741

PATIENT
  Age: 71 Year
  Sex: Female

DRUGS (21)
  1. DIGOXIN [Suspect]
     Dosage: 0.25MG, DAILY, PO
     Route: 048
     Dates: start: 20030101, end: 20080415
  2. LESCOL [Concomitant]
  3. ACCOLATE [Concomitant]
  4. LASIX [Concomitant]
  5. NEBUMETONE [Concomitant]
  6. HYDROCHLOROTHIAZIDE [Concomitant]
  7. VERAPAMIL [Concomitant]
  8. SIMVASTATIN [Concomitant]
  9. LEVOTHROID [Concomitant]
  10. HUMULIN R [Concomitant]
  11. LISINOPRIL [Concomitant]
  12. ACTOS [Concomitant]
  13. ZOCOR [Concomitant]
  14. NORVASC [Concomitant]
  15. KLOR-CON [Concomitant]
  16. METFORMIN HCL [Concomitant]
  17. AVELOX [Concomitant]
  18. LEVOXYL [Concomitant]
  19. BIAXIN [Concomitant]
  20. AMIBID [Concomitant]
  21. CEFUROXIME [Concomitant]

REACTIONS (24)
  - ABASIA [None]
  - ARTHRALGIA [None]
  - BACK PAIN [None]
  - BLOOD GLUCOSE INCREASED [None]
  - CHEST DISCOMFORT [None]
  - COLITIS [None]
  - COUGH [None]
  - DIARRHOEA [None]
  - DYSPNOEA [None]
  - ECONOMIC PROBLEM [None]
  - EPISTAXIS [None]
  - FATIGUE [None]
  - FIBRIN D DIMER INCREASED [None]
  - FUNGAL INFECTION [None]
  - HYPERTENSION [None]
  - ILL-DEFINED DISORDER [None]
  - JOINT SWELLING [None]
  - LOWER RESPIRATORY TRACT INFECTION [None]
  - MULTIPLE INJURIES [None]
  - OEDEMA PERIPHERAL [None]
  - PARAESTHESIA [None]
  - SINUS CONGESTION [None]
  - TENSION HEADACHE [None]
  - TOOTHACHE [None]
